FAERS Safety Report 19022062 (Version 1)
Quarter: 2021Q1

REPORT INFORMATION
  Report Type: Spontaneous
  Country: US (occurrence: US)
  Receive Date: 20210317
  Receipt Date: 20210317
  Transmission Date: 20210420
  Serious: No
  Sender: FDA-Public Use
  Company Number: US-MYLANLABS-2021M1014094

PATIENT
  Sex: Female

DRUGS (2)
  1. LANSOPRAZOLE DELAYED?RELEASE CAPSULES USP [Suspect]
     Active Substance: LANSOPRAZOLE
     Indication: GASTROOESOPHAGEAL REFLUX DISEASE
     Dosage: 1 DOSAGE FORM, QD, IN THE MORNING
     Route: 048
  2. OMEPRAZOLE. [Suspect]
     Active Substance: OMEPRAZOLE
     Indication: GASTROOESOPHAGEAL REFLUX DISEASE
     Dosage: 1 DOSAGE FORM, QD, IN THE EVENING
     Route: 048

REACTIONS (2)
  - Product contamination physical [Not Recovered/Not Resolved]
  - Incorrect dose administered [Not Recovered/Not Resolved]
